FAERS Safety Report 8938074 (Version 3)
Quarter: 2013Q4

REPORT INFORMATION
  Report Type: Spontaneous
  Country: GB (occurrence: GB)
  Receive Date: 20121203
  Receipt Date: 20131007
  Transmission Date: 20140711
  Serious: Yes (Other)
  Sender: FDA-Public Use
  Company Number: GB-TARO-2012P1065525

PATIENT
  Age: 70 Year
  Sex: Female
  Weight: 72.2 kg

DRUGS (21)
  1. CARBAMAZEPINE [Suspect]
     Indication: NEURALGIA
  2. CARBAMAZEPINE [Suspect]
     Indication: CONVULSION
  3. ATORVASTATIN [Suspect]
     Indication: DYSLIPIDAEMIA
  4. ATORVASTATIN [Suspect]
     Indication: PROPHYLAXIS
  5. GLYCERYL TRINITRATE [Suspect]
     Route: 060
  6. IBUPROFEN [Suspect]
     Indication: DYSMENORRHOEA
  7. IBUPROFEN [Suspect]
     Indication: PYREXIA
  8. IBUPROFEN [Suspect]
     Indication: PAIN
  9. IBUPROFEN [Suspect]
     Indication: PATENT DUCTUS ARTERIOSUS
  10. IBUPROFEN [Suspect]
     Indication: PERICARDITIS
  11. IBUPROFEN [Suspect]
     Indication: RHEUMATOID ARTHRITIS
  12. LANSOPRAZOLE [Suspect]
     Indication: DUODENAL ULCER
  13. LANSOPRAZOLE [Suspect]
     Indication: GASTRIC ULCER
  14. LANSOPRAZOLE [Suspect]
  15. LANSOPRAZOLE [Suspect]
  16. LANSOPRAZOLE [Suspect]
     Indication: GASTRINOMA
  17. LOPERAMIDE [Suspect]
     Indication: FUNCTIONAL GASTROINTESTINAL DISORDER
  18. LOPERAMIDE [Suspect]
     Indication: GASTRINOMA
  19. LOPERAMIDE [Suspect]
     Indication: DIARRHOEA
  20. METFORMIN [Suspect]
     Indication: TYPE 2 DIABETES MELLITUS
  21. ISOSORBIDE MONONITRATE [Suspect]

REACTIONS (1)
  - Colitis microscopic [Not Recovered/Not Resolved]
